FAERS Safety Report 8177552-1 (Version None)
Quarter: 2012Q1

REPORT INFORMATION
  Report Type: 
  Country: None (occurrence: None)
  Receive Date: 20120301
  Receipt Date: 20120226
  Transmission Date: 20120608
  Serious: Yes (Hospitalization)
  Sender: FDA-Public Use
  Company Number: IT-BAYER-2012-018763

PATIENT
  Age: 81 Year
  Sex: Male

DRUGS (3)
  1. KEPPRA [Concomitant]
     Indication: POSTICTAL STATE
     Dosage: DAILY DOSE 100 MG
     Route: 048
  2. ASPIRIN [Suspect]
     Indication: POSTICTAL STATE
     Dosage: 100 MG, QD
     Route: 048
     Dates: start: 20090801, end: 20110921
  3. FLECAINIDE ACETATE [Concomitant]

REACTIONS (4)
  - DYSPHAGIA [None]
  - CEREBRAL HAEMORRHAGE [None]
  - ABASIA [None]
  - AGNOSIA [None]
